FAERS Safety Report 9989082 (Version 2)
Quarter: 2014Q1

REPORT INFORMATION
  Report Type: Report from Study
  Country: US (occurrence: US)
  Receive Date: 20140310
  Receipt Date: 20140310
  Transmission Date: 20141002
  Serious: No
  Sender: FDA-Public Use
  Company Number: US-ABBVIE-13P-163-1122148-00

PATIENT
  Age: 58 Year
  Sex: Female

DRUGS (13)
  1. HUMIRA [Suspect]
     Indication: COLITIS ULCERATIVE
     Dates: start: 200912, end: 2011
  2. HUMIRA [Suspect]
     Dates: start: 201303
  3. ESTRADIOL [Concomitant]
     Indication: HORMONE REPLACEMENT THERAPY
  4. B 12 [Concomitant]
     Indication: COLITIS ULCERATIVE
  5. OMEPRAZOLE [Concomitant]
     Indication: GASTROOESOPHAGEAL REFLUX DISEASE
  6. FOLIC ACID [Concomitant]
     Indication: PRODUCT USED FOR UNKNOWN INDICATION
  7. LEDERTREXATE [Concomitant]
     Indication: RHEUMATOID ARTHRITIS
  8. TEMAZEPAM [Concomitant]
     Indication: INSOMNIA
     Dosage: AT BEDTIME
  9. CELEXA [Concomitant]
     Indication: ANTIDEPRESSANT THERAPY
  10. LISINOPRIL [Concomitant]
     Indication: HYPERTENSION
  11. PHILLIPS [Concomitant]
     Indication: CONSTIPATION
     Dosage: AT BEDTIME
  12. MORPHINE [Concomitant]
     Indication: PAIN
     Dosage: UP TO 45MG A DAY
  13. TIZANIDINE [Concomitant]
     Indication: INSOMNIA
     Dosage: AT BEDTIME

REACTIONS (2)
  - Urinary tract infection [Recovered/Resolved]
  - Urinary tract infection [Recovered/Resolved]
